FAERS Safety Report 13542871 (Version 1)
Quarter: 2017Q2

REPORT INFORMATION
  Report Type: Report from Study
  Country: US (occurrence: US)
  Receive Date: 20170513
  Receipt Date: 20170513
  Transmission Date: 20170830
  Serious: Yes (Death, Hospitalization, Disabling, Other)
  Sender: FDA-Public Use
  Company Number: PHEH2017US014130

PATIENT
  Age: 55 Year
  Sex: Female

DRUGS (1)
  1. AFINITOR [Suspect]
     Active Substance: EVEROLIMUS
     Indication: PRODUCT USED FOR UNKNOWN INDICATION
     Dosage: 10 MG, QD
     Route: 048
     Dates: start: 20170228

REACTIONS (5)
  - Feeling abnormal [Unknown]
  - Dehydration [Unknown]
  - Mobility decreased [Unknown]
  - Renal failure [Fatal]
  - Sepsis [Unknown]

NARRATIVE: CASE EVENT DATE: 20170315
